FAERS Safety Report 7494905-5 (Version None)
Quarter: 2011Q2

REPORT INFORMATION
  Report Type: 
  Country: None (occurrence: None)
  Receive Date: 20110520
  Receipt Date: 20110517
  Transmission Date: 20111010
  Serious: Yes (Hospitalization)
  Sender: FDA-Public Use
  Company Number: FR-BRISTOL-MYERS SQUIBB COMPANY-15315427

PATIENT
  Age: 63 Year
  Sex: Male

DRUGS (12)
  1. AMIODARONE HCL [Suspect]
     Dosage: TAKEN AS CONMED ALSO JUN10.
     Dates: end: 20100301
  2. MELPHALAN HYDROCHLORIDE [Concomitant]
  3. SINTROM [Concomitant]
  4. LASIX [Concomitant]
  5. IRBESARTAN [Suspect]
     Dates: end: 20100101
  6. RAMIPRIL [Concomitant]
  7. LEVOTHYROXINE SODIUM [Concomitant]
  8. CALCIUM CARBONATE [Concomitant]
  9. BISOPROLOL FUMARATE [Concomitant]
     Dates: start: 20100601
  10. ASPIRIN [Suspect]
     Dates: end: 20100101
  11. ACTONEL [Concomitant]
  12. OMEPRAZOLE [Concomitant]

REACTIONS (5)
  - CARDIAC FAILURE [None]
  - DYSPNOEA [None]
  - CHOLESTASIS [None]
  - INTERSTITIAL LUNG DISEASE [None]
  - CELL DEATH [None]
